FAERS Safety Report 14424744 (Version 1)
Quarter: 2018Q1

REPORT INFORMATION
  Report Type: Spontaneous
  Country: US (occurrence: US)
  Receive Date: 20180122
  Receipt Date: 20180122
  Transmission Date: 20180509
  Serious: No
  Sender: FDA-Public Use
  Company Number: None

PATIENT
  Sex: Male

DRUGS (1)
  1. DAPTOMYCIN 156MG HOSPIRA [Suspect]
     Active Substance: DAPTOMYCIN
     Indication: OSTEOMYELITIS
     Route: 042
     Dates: start: 20171213, end: 20171213

REACTIONS (4)
  - Tremor [None]
  - Feeling cold [None]
  - Seizure [None]
  - Chills [None]

NARRATIVE: CASE EVENT DATE: 20171213
